FAERS Safety Report 8330142-X (Version None)
Quarter: 2012Q2

REPORT INFORMATION
  Report Type: 
  Country: None (occurrence: None)
  Receive Date: 20120502
  Receipt Date: 20100125
  Transmission Date: 20120825
  Serious: No
  Sender: FDA-Public Use
  Company Number: US-TEVA-2010000462

PATIENT
  Sex: Female

DRUGS (2)
  1. NUVIGIL [Suspect]
     Indication: FATIGUE
     Route: 048
  2. WELLBUTRIN [Concomitant]

REACTIONS (3)
  - AGITATION [None]
  - DRUG INEFFECTIVE FOR UNAPPROVED INDICATION [None]
  - IRRITABILITY [None]
